FAERS Safety Report 5743970-1 (Version None)
Quarter: 2008Q2

REPORT INFORMATION
  Report Type: 
  Country: None (occurrence: None)
  Receive Date: 20080520
  Receipt Date: 20080515
  Transmission Date: 20081010
  Serious: Yes (Other)
  Sender: FDA-Public Use
  Company Number: GB-TEVA-171101ISR

PATIENT
  Sex: Female

DRUGS (2)
  1. LORATADINE [Suspect]
     Indication: SEASONAL ALLERGY
     Route: 048
     Dates: start: 20080426, end: 20080427
  2. MEDROXYPROGESTERONE ACETATE [Concomitant]
     Route: 042

REACTIONS (2)
  - AGGRESSION [None]
  - SUICIDAL IDEATION [None]
